FAERS Safety Report 8309704-1 (Version None)
Quarter: 2012Q2

REPORT INFORMATION
  Report Type: 
  Country: None (occurrence: None)
  Receive Date: 20120423
  Receipt Date: 20120314
  Transmission Date: 20120825
  Serious: Yes (Death, Hospitalization)
  Sender: FDA-Public Use
  Company Number: 2012ST000399

PATIENT
  Age: 83 Year
  Sex: Male

DRUGS (1)
  1. MATULANE [Suspect]
     Indication: LYMPHOMA
     Dosage: 100 MG;QD;PO
     Route: 048
     Dates: start: 20120216

REACTIONS (2)
  - HOSPITALISATION [None]
  - HOSPICE CARE [None]
